FAERS Safety Report 7121408-X (Version None)
Quarter: 2010Q4

REPORT INFORMATION
  Report Type: 
  Country: None (occurrence: None)
  Receive Date: 20101124
  Receipt Date: 20101111
  Transmission Date: 20110411
  Serious: Yes (Other)
  Sender: FDA-Public Use
  Company Number: PHHY2010IT77358

PATIENT
  Sex: Female

DRUGS (1)
  1. VOLTAREN [Suspect]
     Dosage: 150  MG
     Route: 048
     Dates: start: 20100510, end: 20100511

REACTIONS (2)
  - PEMPHIGOID [None]
  - PERIORBITAL OEDEMA [None]
